FAERS Safety Report 10597995 (Version 2)
Quarter: 2014Q4

REPORT INFORMATION
  Report Type: Spontaneous
  Country: US (occurrence: None)
  Receive Date: 20141119
  Receipt Date: 20141231
  Transmission Date: 20150529
  Serious: Yes (Other)
  Sender: FDA-Public Use
  Company Number: 2014JUB00184

PATIENT
  Age: 59 Year
  Sex: Female
  Weight: 90.7 kg

DRUGS (2)
  1. PREDNISONE. [Suspect]
     Active Substance: PREDNISONE
     Indication: RENAL TRANSPLANT
     Dosage: UNK MG
     Route: 048
     Dates: start: 1982
  2. IMURAN [Suspect]
     Active Substance: AZATHIOPRINE
     Indication: RENAL TRANSPLANT
     Dates: start: 1982, end: 2012

REACTIONS (15)
  - Body height decreased [None]
  - Vein disorder [None]
  - Back pain [None]
  - Skin cancer [None]
  - Bone pain [None]
  - Intervertebral disc protrusion [None]
  - Bone cancer [None]
  - Blood pressure abnormal [None]
  - Arthritis [None]
  - Cataract [None]
  - Depression [None]
  - Bone disorder [None]
  - Tooth loss [None]
  - Mood swings [None]
  - Bone loss [None]

NARRATIVE: CASE EVENT DATE: 1997
